FAERS Safety Report 16197169 (Version 4)
Quarter: 2019Q2

REPORT INFORMATION
  Report Type: Spontaneous
  Country: US (occurrence: US)
  Receive Date: 20190415
  Receipt Date: 20190531
  Transmission Date: 20190711
  Serious: No
  Sender: FDA-Public Use
  Company Number: US-PFIZER INC-2019157610

PATIENT
  Age: 78 Year
  Sex: Male
  Weight: 68.95 kg

DRUGS (5)
  1. DESONIDE. [Concomitant]
     Active Substance: DESONIDE
     Dosage: UNK
  2. LAC-HYDRIN [Concomitant]
     Active Substance: AMMONIUM LACTATE
     Dosage: UNK
  3. EUCRISA [Suspect]
     Active Substance: CRISABOROLE
     Indication: RASH PAPULAR
     Dosage: UNK, 1X/DAY (ONCE A DAY IN THE MORNING)
     Dates: end: 2018
  4. EUCRISA [Suspect]
     Active Substance: CRISABOROLE
     Indication: ECZEMA
     Dosage: UNK, 2X/DAY (APPLY TO FACE)
     Route: 061
     Dates: start: 20180523, end: 20180530
  5. TRIAMCINOLONE [Concomitant]
     Active Substance: TRIAMCINOLONE
     Dosage: UNK

REACTIONS (6)
  - Application site swelling [Recovered/Resolved with Sequelae]
  - Drug ineffective [Unknown]
  - Eye swelling [Recovered/Resolved]
  - Application site erythema [Recovered/Resolved with Sequelae]
  - Application site irritation [Unknown]
  - Application site pain [Unknown]

NARRATIVE: CASE EVENT DATE: 201805
